FAERS Safety Report 21958269 (Version 4)
Quarter: 2023Q1

REPORT INFORMATION
  Report Type: Report from Study
  Country: US (occurrence: None)
  Receive Date: 20230206
  Receipt Date: 20230331
  Transmission Date: 20230417
  Serious: Yes (Hospitalization)
  Sender: FDA-Public Use
  Company Number: US-ROCHE-3274620

PATIENT
  Age: 73 Year
  Sex: Female

DRUGS (39)
  1. FARICIMAB [Suspect]
     Active Substance: FARICIMAB
     Indication: Age-related macular degeneration
     Dosage: DOSE LAST STUDY DRUG ADMIN PRIOR AE/SAE ; 6 MG.?START DATE/END DATE OF MOST RECENT DOSE OF STUDY DRU
     Route: 050
     Dates: start: 20210716
  2. RANIBIZUMAB [Suspect]
     Active Substance: RANIBIZUMAB
     Indication: Age-related macular degeneration
     Route: 065
     Dates: start: 20210716
  3. FARICIMAB [Suspect]
     Active Substance: FARICIMAB
     Indication: Age-related macular degeneration
     Dosage: START DATE OF MOST RECENT DOSE OF STUDY DRUG PRIOR TO AE/SAE ON 09-NOV-2022.
     Route: 050
     Dates: start: 20220302
  4. FELODIPINE [Concomitant]
     Active Substance: FELODIPINE
     Indication: Hypertension
     Route: 048
     Dates: start: 2015
  5. SIMVASTATIN [Concomitant]
     Active Substance: SIMVASTATIN
     Indication: Hypercholesterolaemia
     Route: 048
     Dates: start: 2009
  6. METFORMIN HYDROCHLORIDE [Concomitant]
     Active Substance: METFORMIN HYDROCHLORIDE
     Indication: Type 2 diabetes mellitus
     Route: 048
     Dates: start: 2018
  7. TRIAMTERENE AND HYDROCHLOROTHIAZIDE [Concomitant]
     Active Substance: HYDROCHLOROTHIAZIDE\TRIAMTERENE
     Indication: Fluid retention
     Route: 048
     Dates: start: 2009
  8. ATENOLOL [Concomitant]
     Active Substance: ATENOLOL
     Indication: Hypertension
     Route: 048
     Dates: start: 2018
  9. FISH OIL [Concomitant]
     Active Substance: FISH OIL
     Route: 048
     Dates: start: 2009
  10. CYANOCOBALAMIN [Concomitant]
     Active Substance: CYANOCOBALAMIN
     Route: 048
     Dates: start: 2014
  11. MELOXICAM [Concomitant]
     Active Substance: MELOXICAM
     Indication: Arthritis
     Route: 048
     Dates: start: 2018
  12. MOVE FREE JOINT HEALTH [Concomitant]
     Indication: Arthritis
     Route: 048
     Dates: start: 2016
  13. BENADRYL [Concomitant]
     Active Substance: DIPHENHYDRAMINE HYDROCHLORIDE
     Route: 048
     Dates: start: 20190821
  14. METFORMIN [Concomitant]
     Active Substance: METFORMIN HYDROCHLORIDE
     Indication: Type 2 diabetes mellitus
     Dates: start: 20210703
  15. ASPIRIN [Concomitant]
     Active Substance: ASPIRIN
     Indication: Aneurysm
     Route: 048
     Dates: start: 20230126, end: 20230127
  16. CLOPIDOGREL BISULFATE [Concomitant]
     Active Substance: CLOPIDOGREL BISULFATE
     Indication: Aneurysm
     Route: 048
     Dates: start: 20230126, end: 20230127
  17. ACETAMINOPHEN [Concomitant]
     Active Substance: ACETAMINOPHEN
     Indication: Aneurysm
     Route: 048
     Dates: start: 20230126, end: 20230127
  18. HEPARIN [Concomitant]
     Active Substance: HEPARIN SODIUM
     Indication: Aneurysm
     Route: 042
     Dates: start: 20230126, end: 20230127
  19. DEXTROSE [Concomitant]
     Active Substance: DEXTROSE
     Indication: Aneurysm
     Route: 042
     Dates: start: 20230126, end: 20230127
  20. GLUCAGON [Concomitant]
     Active Substance: GLUCAGON
  21. DEXTROSE [Concomitant]
     Active Substance: DEXTROSE
  22. HYDRALAZINE [Concomitant]
     Active Substance: HYDRALAZINE HYDROCHLORIDE
  23. LABETALOL [Concomitant]
     Active Substance: LABETALOL\LABETALOL HYDROCHLORIDE
  24. POTASSIUM CHLORIDE [Concomitant]
     Active Substance: POTASSIUM CHLORIDE
     Indication: Aneurysm
     Route: 048
     Dates: start: 20230126
  25. MAGNESIUM SULFATE [Concomitant]
     Active Substance: MAGNESIUM SULFATE
     Indication: Aneurysm
     Route: 042
     Dates: start: 20230126, end: 20230127
  26. SODIUM CHLORIDE [Concomitant]
     Active Substance: SODIUM CHLORIDE
     Indication: Aneurysm
     Dosage: RESPIRATORY (INHALATION)
     Route: 045
     Dates: start: 20230126, end: 20230127
  27. SODIUM CHLORIDE [Concomitant]
     Active Substance: SODIUM CHLORIDE
     Route: 042
     Dates: start: 20230126, end: 20230127
  28. PROPOFOL [Concomitant]
     Active Substance: PROPOFOL
     Indication: Aneurysm
     Route: 042
     Dates: start: 20230126, end: 20230127
  29. HEPARIN [Concomitant]
     Active Substance: HEPARIN SODIUM
     Indication: Aneurysm
     Dosage: 3,000 MI
     Route: 042
     Dates: start: 20230126, end: 20230127
  30. LIDOCAINE [Concomitant]
     Active Substance: LIDOCAINE
     Indication: Aneurysm
     Route: 042
     Dates: start: 20230126, end: 20230127
  31. FENTANYL [Concomitant]
     Active Substance: FENTANYL
     Indication: Aneurysm
     Dosage: 50 MCG
     Route: 042
     Dates: start: 20230126, end: 20230127
  32. FENTANYL [Concomitant]
     Active Substance: FENTANYL
     Dosage: 25 MCG
     Route: 042
     Dates: start: 20230126, end: 20230127
  33. HYDROMORPHONE [Concomitant]
     Active Substance: HYDROMORPHONE
     Indication: Aneurysm
     Route: 042
     Dates: start: 20230126, end: 20230127
  34. HYDROMORPHONE [Concomitant]
     Active Substance: HYDROMORPHONE
     Route: 042
     Dates: start: 20230126, end: 20230127
  35. HYDROMORPHONE [Concomitant]
     Active Substance: HYDROMORPHONE
     Route: 042
     Dates: start: 20230126, end: 20230127
  36. LACTATED RINGERS SOLUTION [Concomitant]
     Active Substance: CALCIUM CHLORIDE\POTASSIUM CHLORIDE\SODIUM CHLORIDE\SODIUM LACTATE
     Indication: Aneurysm
     Route: 042
     Dates: start: 20230126, end: 20230127
  37. MEPERIDINE [Concomitant]
     Active Substance: MEPERIDINE
     Indication: Aneurysm
     Route: 042
     Dates: start: 20230126, end: 20230127
  38. ONDANSETRON [Concomitant]
     Active Substance: ONDANSETRON
     Indication: Aneurysm
     Route: 042
     Dates: start: 20230126, end: 20230127
  39. PLAVIX [Concomitant]
     Active Substance: CLOPIDOGREL BISULFATE
     Indication: Aneurysm
     Route: 048
     Dates: start: 20230126, end: 20230223

REACTIONS (1)
  - Intracranial aneurysm [Recovered/Resolved]

NARRATIVE: CASE EVENT DATE: 20221229
